FAERS Safety Report 23919913 (Version 1)
Quarter: 2024Q2

REPORT INFORMATION
  Report Type: Spontaneous
  Country: US (occurrence: None)
  Receive Date: 20240529
  Receipt Date: 20240529
  Transmission Date: 20240716
  Serious: No
  Sender: FDA-Public Use
  Company Number: None

PATIENT
  Sex: 0

DRUGS (1)
  1. AUBAGIO [Suspect]
     Active Substance: TERIFLUNOMIDE

REACTIONS (6)
  - Drug ineffective [None]
  - Gait disturbance [None]
  - Sensory loss [None]
  - Paraesthesia [None]
  - Bladder disorder [None]
  - Gastrointestinal disorder [None]
